FAERS Safety Report 7362427-8 (Version None)
Quarter: 2011Q1

REPORT INFORMATION
  Report Type: 
  Country: None (occurrence: None)
  Receive Date: 20110318
  Receipt Date: 20110310
  Transmission Date: 20110831
  Serious: Yes (Life-Threatening)
  Sender: FDA-Public Use
  Company Number: US-GENENTECH-301936

PATIENT
  Sex: Female
  Weight: 59 kg

DRUGS (3)
  1. OMALIZUMAB [Suspect]
     Indication: ASTHMA
     Dosage: 150 MG, UNK
     Route: 058
     Dates: start: 20050901, end: 20080411
  2. ALBUTEROL [Concomitant]
     Indication: ASTHMA
  3. QVAR 40 [Concomitant]
     Indication: ASTHMA

REACTIONS (1)
  - DRUG HYPERSENSITIVITY [None]
